FAERS Safety Report 7985906-9 (Version None)
Quarter: 2011Q4

REPORT INFORMATION
  Report Type: 
  Country: None (occurrence: None)
  Receive Date: 20111214
  Receipt Date: 20111205
  Transmission Date: 20120403
  Serious: Yes (Other)
  Sender: FDA-Public Use
  Company Number: DSA_48225_2011

PATIENT
  Sex: Female
  Weight: 82.1011 kg

DRUGS (2)
  1. ATENOLOL [Concomitant]
  2. NIFEDICAL XL EXTENDED-RELEASE TABLETS 60 MG [Suspect]
     Indication: HYPERTENSION
     Dosage: (60 MG QD ORAL)
     Route: 048
     Dates: start: 20111027, end: 20111119

REACTIONS (2)
  - DRUG EFFECT DECREASED [None]
  - PRODUCT QUALITY ISSUE [None]
